FAERS Safety Report 23281239 (Version 3)
Quarter: 2024Q1

REPORT INFORMATION
  Report Type: Spontaneous
  Country: US (occurrence: US)
  Receive Date: 20231211
  Receipt Date: 20240105
  Transmission Date: 20240410
  Serious: Yes (Hospitalization, Other)
  Sender: FDA-Public Use
  Company Number: US-SANDOZ-SDZ2023US064233

PATIENT
  Age: 16 Year
  Sex: Male
  Weight: 52.9 kg

DRUGS (2)
  1. CYCLOPHOSPHAMIDE [Suspect]
     Active Substance: CYCLOPHOSPHAMIDE
     Indication: Lymphodepletion
     Dosage: 1000 MG/M2, QD
     Route: 065
     Dates: start: 20231018, end: 20231020
  2. FLUDARABINE [Suspect]
     Active Substance: FLUDARABINE PHOSPHATE
     Indication: Lymphodepletion
     Dosage: 30 MG/M2, QD
     Route: 042
     Dates: start: 20231017, end: 20231020

REACTIONS (4)
  - Middle ear inflammation [Not Recovered/Not Resolved]
  - Erythema [Unknown]
  - Cytokine release syndrome [Unknown]
  - Pyrexia [Unknown]

NARRATIVE: CASE EVENT DATE: 20231023
